FAERS Safety Report 10230975 (Version 1)
Quarter: 2014Q2

REPORT INFORMATION
  Report Type: Spontaneous
  Country: US (occurrence: US)
  Receive Date: 20140611
  Receipt Date: 20140611
  Transmission Date: 20141212
  Serious: Yes (Other)
  Sender: FDA-Public Use
  Company Number: US-PFIZER INC-2014157412

PATIENT
  Age: 65 Year
  Sex: Male
  Weight: 106.12 kg

DRUGS (6)
  1. DEPO-TESTOSTERONE [Suspect]
     Indication: BLOOD TESTOSTERONE DECREASED
     Dosage: 0.35 MG, WEEKLY
     Dates: start: 2011, end: 201404
  2. TESTOSTERONE CIPIONATE [Suspect]
     Indication: BLOOD TESTOSTERONE DECREASED
     Dosage: UNK
  3. SYNTHROID [Concomitant]
     Dosage: 50 MG, DAILY
     Dates: start: 2011
  4. LISINOPRIL [Concomitant]
     Dosage: 30 MG, DAILY
     Dates: start: 2011
  5. FENOFIBRATE [Concomitant]
     Dosage: 40 MG, DAILY
     Dates: start: 2011
  6. ATORVASTATIN [Concomitant]
     Dosage: 10 MG, DAILY
     Dates: start: 2011

REACTIONS (1)
  - Cerebrovascular accident [Unknown]
